FAERS Safety Report 8374689-9 (Version None)
Quarter: 2012Q2

REPORT INFORMATION
  Report Type: 
  Country: None (occurrence: None)
  Receive Date: 20120521
  Receipt Date: 20110511
  Transmission Date: 20120825
  Serious: No
  Sender: FDA-Public Use
  Company Number: US-ASTRAZENECA-2011SE29159

PATIENT
  Age: 42 Year
  Sex: Female

DRUGS (3)
  1. CLONAZEPAM [Concomitant]
  2. SEROQUEL [Suspect]
     Indication: INSOMNIA
     Route: 048
  3. PRILOSEC OTC [Suspect]
     Route: 048

REACTIONS (2)
  - DRY MOUTH [None]
  - OFF LABEL USE [None]
